FAERS Safety Report 7007348-5 (Version None)
Quarter: 2010Q3

REPORT INFORMATION
  Report Type: 
  Country: None (occurrence: None)
  Receive Date: 20100922
  Receipt Date: 20100913
  Transmission Date: 20110219
  Serious: Yes (Hospitalization)
  Sender: FDA-Public Use
  Company Number: FR-ASTRAZENECA-2010SE43336

PATIENT
  Age: 27 Year
  Sex: Female

DRUGS (3)
  1. NEXIUM [Suspect]
     Route: 048
     Dates: start: 20100623, end: 20100626
  2. CEFTAZIDIME [Suspect]
     Indication: ACINETOBACTER TEST POSITIVE
     Route: 042
     Dates: start: 20100712, end: 20100725
  3. PREVISCAN [Suspect]
     Indication: PULMONARY EMBOLISM
     Route: 048
     Dates: start: 20100706, end: 20100722

REACTIONS (1)
  - CYTOLYTIC HEPATITIS [None]
